FAERS Safety Report 9863094 (Version 1)
Quarter: 2014Q1

REPORT INFORMATION
  Report Type: Spontaneous
  Country: US (occurrence: US)
  Receive Date: 20140203
  Receipt Date: 20140203
  Transmission Date: 20141002
  Serious: Yes (Other)
  Sender: FDA-Public Use
  Company Number: US-PFIZER INC-2014028894

PATIENT
  Age: 53 Year
  Sex: Female
  Weight: 70.3 kg

DRUGS (1)
  1. PREMARIN [Suspect]
     Indication: HORMONE REPLACEMENT THERAPY
     Dosage: 1.25 MG, 1X/DAY
     Route: 048
     Dates: start: 20051130

REACTIONS (3)
  - Diabetes mellitus [Unknown]
  - Nervousness [Unknown]
  - Mood swings [Unknown]
